FAERS Safety Report 6706874-3 (Version None)
Quarter: 2010Q2

REPORT INFORMATION
  Report Type: 
  Country: None (occurrence: None)
  Receive Date: 20100503
  Receipt Date: 20100422
  Transmission Date: 20101027
  Serious: Yes (Other)
  Sender: FDA-Public Use
  Company Number: DK-JNJFOC-20100407253

PATIENT
  Age: 44 Year
  Sex: Female

DRUGS (1)
  1. REMICADE [Suspect]
     Indication: ANKYLOSING SPONDYLITIS
     Dosage: 2 INFUSIONS
     Route: 042

REACTIONS (8)
  - ABDOMINAL PAIN UPPER [None]
  - CHEST DISCOMFORT [None]
  - DYSPNOEA [None]
  - FEAR [None]
  - HAEMATOCHEZIA [None]
  - HYPOTENSION [None]
  - INFUSION RELATED REACTION [None]
  - RECTAL TENESMUS [None]
